FAERS Safety Report 18900751 (Version 1)
Quarter: 2021Q1

REPORT INFORMATION
  Report Type: Spontaneous
  Country: US (occurrence: US)
  Receive Date: 20210217
  Receipt Date: 20210217
  Transmission Date: 20210420
  Serious: No
  Sender: FDA-Public Use
  Company Number: US-SA-2021SA039849

PATIENT
  Age: 80 Year
  Sex: Male
  Weight: 100.69 kg

DRUGS (2)
  1. PRADAXA [Suspect]
     Active Substance: DABIGATRAN ETEXILATE MESYLATE
     Dosage: UNK
  2. PLAVIX [Suspect]
     Active Substance: CLOPIDOGREL BISULFATE
     Indication: STENT PLACEMENT
     Dosage: UNK UNK, QD
     Route: 065
     Dates: start: 2000

REACTIONS (7)
  - Scar [Unknown]
  - Heart rate abnormal [Unknown]
  - Gastrointestinal haemorrhage [Unknown]
  - Atrial fibrillation [Unknown]
  - Vascular graft [Unknown]
  - Abdominal discomfort [Unknown]
  - Stent placement [Unknown]

NARRATIVE: CASE EVENT DATE: 2011
